FAERS Safety Report 18570380 (Version 1)
Quarter: 2020Q4

REPORT INFORMATION
  Report Type: Report from Study
  Country: PL (occurrence: PL)
  Receive Date: 20201202
  Receipt Date: 20201202
  Transmission Date: 20210114
  Serious: Yes (Hospitalization, Other)
  Sender: FDA-Public Use
  Company Number: PL-GW PHARMA-201603PLGW0135

PATIENT

DRUGS (5)
  1. DEPAKINE [Concomitant]
     Active Substance: VALPROATE SODIUM
     Dosage: 500 MILLIGRAM, BID
     Route: 048
     Dates: start: 20160229
  2. EPIDIOLEX [Suspect]
     Active Substance: CANNABIDIOL
     Indication: LENNOX-GASTAUT SYNDROME
     Dosage: 20 MG/KG, 940 MILLIGRAM, QD
     Route: 048
     Dates: start: 20160201, end: 20160317
  3. LAMITRIN [Concomitant]
     Active Substance: LAMOTRIGINE
     Indication: LENNOX-GASTAUT SYNDROME
     Dosage: 100 MILLIGRAM, BID
     Route: 048
     Dates: start: 200605
  4. ZINNAT [Concomitant]
     Active Substance: CEFUROXIME
     Indication: PHARYNGITIS
     Dosage: 250 MILLIGRAM, BID
     Route: 048
     Dates: start: 20160216, end: 20160220
  5. DEPAKINE [Concomitant]
     Active Substance: VALPROATE SODIUM
     Indication: LENNOX-GASTAUT SYNDROME
     Dosage: 750 MILLIGRAM, BID
     Route: 048
     Dates: start: 200902

REACTIONS (3)
  - Status epilepticus [Recovered/Resolved]
  - Hepatic enzyme increased [Recovered/Resolved]
  - Myoclonic epilepsy [Recovered/Resolved]

NARRATIVE: CASE EVENT DATE: 20160229
